FAERS Safety Report 5532527-3 (Version None)
Quarter: 2007Q4

REPORT INFORMATION
  Report Type: 
  Country: None (occurrence: None)
  Receive Date: 20071203
  Receipt Date: 20071121
  Transmission Date: 20080405
  Serious: Yes (Hospitalization, Other)
  Sender: FDA-Public Use
  Company Number: US-PFIZER INC-2007099737

PATIENT
  Sex: Male
  Weight: 100.9 kg

DRUGS (5)
  1. CHANTIX [Suspect]
     Indication: SMOKING CESSATION THERAPY
     Route: 048
     Dates: start: 20070501, end: 20070501
  2. ALL OTHER THERAPEUTIC PRODUCTS [Concomitant]
  3. ALL OTHER THERAPEUTIC PRODUCTS [Concomitant]
  4. CHOLESTEROL [Concomitant]
  5. CHOLESTEROL [Concomitant]

REACTIONS (14)
  - BRONCHITIS [None]
  - CARDIAC DISORDER [None]
  - CARDIAC FAILURE [None]
  - CARDIAC FLUTTER [None]
  - CHOKING [None]
  - CHRONIC SINUSITIS [None]
  - ERUCTATION [None]
  - FLATULENCE [None]
  - FLUID RETENTION [None]
  - IMPLANTABLE DEFIBRILLATOR INSERTION [None]
  - INSOMNIA [None]
  - MYOCARDIAL INFARCTION [None]
  - SMOKER [None]
  - WEIGHT DECREASED [None]
